FAERS Safety Report 7948529-3 (Version None)
Quarter: 2011Q4

REPORT INFORMATION
  Report Type: 
  Country: None (occurrence: None)
  Receive Date: 20111130
  Receipt Date: 20111121
  Transmission Date: 20120403
  Serious: Yes (Other)
  Sender: FDA-Public Use
  Company Number: US-SANOFI-AVENTIS-2011SA076975

PATIENT
  Sex: Female

DRUGS (1)
  1. PLAQUENIL [Suspect]
     Route: 065

REACTIONS (2)
  - ADVERSE EVENT [None]
  - CONVULSION [None]
